FAERS Safety Report 4937465-2 (Version None)
Quarter: 2006Q1

REPORT INFORMATION
  Report Type: 
  Country: None (occurrence: None)
  Receive Date: 20060309
  Receipt Date: 20060223
  Transmission Date: 20060701
  Serious: Yes (Other)
  Sender: FDA-Public Use
  Company Number: PHEH2006US02966

PATIENT
  Age: 86 Year
  Sex: Female
  Weight: 81.179 kg

DRUGS (4)
  1. AREDIA [Suspect]
     Indication: BREAST CANCER METASTATIC
     Dosage: 90 MG, QMO
     Route: 042
     Dates: start: 20001122, end: 20050721
  2. ZOMETA [Suspect]
     Dosage: UNK,UNK
  3. AROMYCIN [Concomitant]
  4. DURAGESIC-100 [Concomitant]

REACTIONS (3)
  - BONE DISORDER [None]
  - BONE LESION [None]
  - GINGIVAL ULCERATION [None]
